FAERS Safety Report 11224093 (Version 2)
Quarter: 2015Q3

REPORT INFORMATION
  Report Type: Spontaneous
  Country: FR (occurrence: FR)
  Receive Date: 20150629
  Receipt Date: 20150730
  Transmission Date: 20151125
  Serious: Yes (Hospitalization)
  Sender: FDA-Public Use
  Company Number: FR-JNJFOC-20150620805

PATIENT
  Age: 34 Year
  Sex: Female

DRUGS (1)
  1. ALMOGRAN [Suspect]
     Active Substance: ALMOTRIPTAN MALATE
     Indication: MIGRAINE WITHOUT AURA
     Dosage: STARTED TAKING 1 OR 2 MONTHS BEFORE BEING HOSPITALIZED.
     Route: 048
     Dates: start: 201409, end: 201411

REACTIONS (1)
  - Ischaemic stroke [Recovered/Resolved]

NARRATIVE: CASE EVENT DATE: 20141108
